FAERS Safety Report 12182118 (Version 1)
Quarter: 2016Q1

REPORT INFORMATION
  Report Type: Spontaneous
  Country: US (occurrence: US)
  Receive Date: 20160315
  Receipt Date: 20160315
  Transmission Date: 20160526
  Serious: Yes (Other)
  Sender: FDA-Public Use
  Company Number: US-ROCHE-1723167

PATIENT
  Sex: Female

DRUGS (2)
  1. GAZYVA [Suspect]
     Active Substance: OBINUTUZUMAB
     Indication: CHRONIC LYMPHOCYTIC LEUKAEMIA
     Route: 065
  2. GAZYVA [Suspect]
     Active Substance: OBINUTUZUMAB
     Dosage: DOSE REDUCED FROM 1000 MG
     Route: 065

REACTIONS (7)
  - Platelet count decreased [Unknown]
  - Underdose [Unknown]
  - Blood pressure increased [Recovered/Resolved]
  - White blood cell count decreased [Unknown]
  - Headache [Recovered/Resolved]
  - Haemoglobin decreased [Unknown]
  - Chills [Recovered/Resolved]
